FAERS Safety Report 6746836-3 (Version None)
Quarter: 2010Q2

REPORT INFORMATION
  Report Type: 
  Country: None (occurrence: None)
  Receive Date: 20100528
  Receipt Date: 20100223
  Transmission Date: 20101027
  Serious: No
  Sender: FDA-Public Use
  Company Number: A0845952A

PATIENT
  Sex: Male

DRUGS (5)
  1. VENTOLIN [Suspect]
     Indication: ASTHMA
     Dosage: 2PUFF AS REQUIRED
     Route: 055
     Dates: start: 20091201
  2. NEXIUM [Concomitant]
  3. UNSPECIFIED MEDICATION [Concomitant]
  4. FINASTERIDE [Concomitant]
  5. DOXAZOSIN MESYLATE [Concomitant]

REACTIONS (1)
  - DRUG INEFFECTIVE [None]
